FAERS Safety Report 5921288-1 (Version None)
Quarter: 2008Q4

REPORT INFORMATION
  Report Type: 
  Country: None (occurrence: None)
  Receive Date: 20081014
  Receipt Date: 20080926
  Transmission Date: 20090506
  Serious: Yes (Other)
  Sender: FDA-Public Use
  Company Number: 8037686

PATIENT
  Age: 6 Year
  Sex: Male
  Weight: 35.5 kg

DRUGS (1)
  1. KEPPRA [Suspect]
     Indication: PARTIAL SEIZURES
     Dosage: 200 MG PO
     Route: 048
     Dates: start: 20080513, end: 20080518

REACTIONS (4)
  - ERYTHEMA [None]
  - FACE OEDEMA [None]
  - PRURITUS [None]
  - PYREXIA [None]
